FAERS Safety Report 5412271-3 (Version None)
Quarter: 2007Q3

REPORT INFORMATION
  Report Type: 
  Country: None (occurrence: None)
  Receive Date: 20070810
  Receipt Date: 20070810
  Transmission Date: 20080115
  Serious: No
  Sender: FDA-Public Use
  Company Number: None

PATIENT
  Sex: Female
  Weight: 72.5755 kg

DRUGS (1)
  1. FEMARA [Suspect]
     Indication: BREAST CANCER
     Dosage: 2.5MG DAILY PO
     Route: 048
     Dates: start: 20050128, end: 20070101

REACTIONS (5)
  - ARTHRALGIA [None]
  - ARTHROPATHY [None]
  - BONE PAIN [None]
  - GAIT DISTURBANCE [None]
  - MUSCULOSKELETAL PAIN [None]
